FAERS Safety Report 20846142 (Version 1)
Quarter: 2022Q2

REPORT INFORMATION
  Report Type: Spontaneous
  Country: US (occurrence: US)
  Receive Date: 20220518
  Receipt Date: 20220518
  Transmission Date: 20220721
  Serious: No
  Sender: FDA-Public Use
  Company Number: USA--2021-US-000758

PATIENT
  Age: 68 Year
  Sex: Male

DRUGS (7)
  1. LATANOPROST [Suspect]
     Active Substance: LATANOPROST
     Dates: start: 20211030, end: 20211123
  2. Refresh Plus lubricant [Concomitant]
     Dates: start: 20191130
  3. METFORMIN [Concomitant]
     Active Substance: METFORMIN HYDROCHLORIDE
     Route: 048
     Dates: start: 20150102
  4. JANUVIA [Concomitant]
     Active Substance: SITAGLIPTIN PHOSPHATE
     Route: 048
     Dates: start: 20150102
  5. RAMIPRIL [Concomitant]
     Active Substance: RAMIPRIL
     Route: 048
     Dates: start: 20190102
  6. SIMVASTATIN [Concomitant]
     Active Substance: SIMVASTATIN
     Route: 048
     Dates: start: 20190102
  7. Bayer low-dose aspirin [Concomitant]
     Route: 048
     Dates: start: 20191130

REACTIONS (2)
  - Drug ineffective [Recovered/Resolved]
  - Vision blurred [Recovered/Resolved]

NARRATIVE: CASE EVENT DATE: 20211030
